FAERS Safety Report 13998529 (Version 2)
Quarter: 2017Q4

REPORT INFORMATION
  Report Type: Spontaneous
  Country: CN (occurrence: CN)
  Receive Date: 20170921
  Receipt Date: 20171025
  Transmission Date: 20180321
  Serious: Yes (Other)
  Sender: FDA-Public Use
  Company Number: PHHY2017CN137308

PATIENT
  Sex: Male

DRUGS (3)
  1. LAMISIL [Suspect]
     Active Substance: TERBINAFINE HYDROCHLORIDE
     Indication: ONYCHOMYCOSIS
     Dosage: UNK
     Route: 065
  2. LAMISIL [Suspect]
     Active Substance: TERBINAFINE HYDROCHLORIDE
     Dosage: 1 DF, QD
     Route: 065
  3. DIAMMONIUM GLYCYRRHIZINATE [Suspect]
     Active Substance: HERBALS
     Indication: LIVER DISORDER
     Dosage: 3 DF, TID
     Route: 065

REACTIONS (5)
  - Product taste abnormal [Unknown]
  - Drug ineffective [Unknown]
  - Onychomycosis [Recovering/Resolving]
  - Product packaging counterfeit [Unknown]
  - Condition aggravated [Recovering/Resolving]
